FAERS Safety Report 25841158 (Version 2)
Quarter: 2025Q3

REPORT INFORMATION
  Report Type: Report from Study
  Country: US (occurrence: US)
  Receive Date: 20250924
  Receipt Date: 20250929
  Transmission Date: 20251021
  Serious: Yes (Other)
  Sender: ALIMERA
  Company Number: US-ALIMERA SCIENCES INC.-US-A16013-25-000298

PATIENT

DRUGS (3)
  1. YUTIQ [Suspect]
     Active Substance: FLUOCINOLONE ACETONIDE
     Indication: Noninfective chorioretinitis
     Route: 031
     Dates: start: 20221220, end: 20241219
  2. AMLODIPINE [Concomitant]
     Active Substance: AMLODIPINE BESYLATE
     Indication: Hypertension
     Dosage: 5 MILLIGRAM, QD
     Route: 048
     Dates: start: 2010
  3. LISINOPRIL [Concomitant]
     Active Substance: LISINOPRIL
     Indication: Hypertension
     Dosage: 40 MILLIGRAM, QD
     Route: 048
     Dates: start: 2010

REACTIONS (1)
  - Corneal oedema [Recovered/Resolved]

NARRATIVE: CASE EVENT DATE: 20241217
